FAERS Safety Report 9137244 (Version 2)
Quarter: 2013Q2

REPORT INFORMATION
  Report Type: Report from Study
  Country: US (occurrence: US)
  Receive Date: 20130304
  Receipt Date: 20130401
  Transmission Date: 20140414
  Serious: Yes (Life-Threatening, Hospitalization, Other)
  Sender: FDA-Public Use
  Company Number: US-ACTELION-A-US2013-80069

PATIENT
  Age: 31 Year
  Sex: Female

DRUGS (1)
  1. VENTAVIS [Suspect]
     Indication: PULMONARY ARTERIAL HYPERTENSION
     Dosage: 5 ?G, X5/DAY
     Route: 055
     Dates: start: 20120509

REACTIONS (5)
  - Cor pulmonale [Recovered/Resolved]
  - Pulmonary oedema [Recovered/Resolved]
  - Pericardial effusion [Recovered/Resolved]
  - Condition aggravated [Recovered/Resolved]
  - Treatment noncompliance [Recovered/Resolved]
